FAERS Safety Report 14890148 (Version 3)
Quarter: 2018Q2

REPORT INFORMATION
  Report Type: Report from Study
  Country: BE (occurrence: BE)
  Receive Date: 20180514
  Receipt Date: 20180529
  Transmission Date: 20180711
  Serious: Yes (Death, Hospitalization, Other)
  Sender: FDA-Public Use
  Company Number: BE-BRISTOL-MYERS SQUIBB COMPANY-BMS-2018-042159

PATIENT
  Age: 70 Year
  Sex: Male

DRUGS (1)
  1. NIVOLUMAB [Suspect]
     Active Substance: NIVOLUMAB
     Indication: NON-SMALL CELL LUNG CANCER
     Dosage: 480 MG, UNK
     Route: 065
     Dates: start: 20170821, end: 20180307

REACTIONS (3)
  - Autoimmune myocarditis [Fatal]
  - Urinary tract infection [Not Recovered/Not Resolved]
  - Autoimmune disorder [Fatal]

NARRATIVE: CASE EVENT DATE: 20180504
